FAERS Safety Report 11668742 (Version 2)
Quarter: 2015Q4

REPORT INFORMATION
  Report Type: Spontaneous
  Country: JP (occurrence: JP)
  Receive Date: 20151027
  Receipt Date: 20151124
  Transmission Date: 20160304
  Serious: Yes (Death, Hospitalization)
  Sender: FDA-Public Use
  Company Number: JP-CELGENE-JPN-2015106672

PATIENT
  Sex: Female

DRUGS (1)
  1. REVLIMID [Suspect]
     Active Substance: LENALIDOMIDE
     Indication: PLASMA CELL MYELOMA
     Dosage: 5 MILLIGRAM
     Route: 048
     Dates: start: 20120516, end: 20120618

REACTIONS (5)
  - Plasma cell myeloma [Fatal]
  - Delirium [Recovering/Resolving]
  - Rash [Unknown]
  - Insomnia [Recovering/Resolving]
  - Hypercalcaemia [Unknown]

NARRATIVE: CASE EVENT DATE: 2012
